FAERS Safety Report 8619799-3 (Version None)
Quarter: 2012Q3

REPORT INFORMATION
  Report Type: 
  Country: None (occurrence: None)
  Receive Date: 20120824
  Receipt Date: 20120813
  Transmission Date: 20120928
  Serious: Yes (Hospitalization)
  Sender: FDA-Public Use
  Company Number: US-PERRIGO-12US007033

PATIENT
  Sex: Female
  Weight: 66.667 kg

DRUGS (5)
  1. COUMADIN [Concomitant]
     Indication: ANTICOAGULANT THERAPY
     Dosage: UNK, UNK
     Route: 048
  2. OMEPRAZOLE [Concomitant]
     Indication: DYSPEPSIA
     Dosage: UNK, UNK
     Route: 048
  3. LASIX [Concomitant]
     Indication: DIURETIC THERAPY
     Dosage: UNK, UNK
     Route: 048
  4. ACETAMINOPHEN [Suspect]
     Indication: ARTHRITIS
     Dosage: 1300 MG, SINGLE
     Route: 048
     Dates: start: 20120701, end: 20120701
  5. ACETAMINOPHEN [Suspect]
     Dosage: 650 MG, SINGLE
     Route: 048
     Dates: start: 20120812, end: 20120812

REACTIONS (2)
  - CHEST PAIN [None]
  - HYPOAESTHESIA [None]
